FAERS Safety Report 14193811 (Version 1)
Quarter: 2017Q4

REPORT INFORMATION
  Report Type: Spontaneous
  Country: RU (occurrence: RU)
  Receive Date: 20171115
  Receipt Date: 20171115
  Transmission Date: 20180321
  Serious: Yes (Hospitalization, Other)
  Sender: FDA-Public Use
  Company Number: RU-ASTRAZENECA-2017SF15502

PATIENT
  Age: 61 Year
  Sex: Female

DRUGS (4)
  1. ROSUVASTATIN. [Concomitant]
     Active Substance: ROSUVASTATIN
  2. BRILINTA [Suspect]
     Active Substance: TICAGRELOR
     Indication: MYOCARDIAL INFARCTION
     Route: 048
     Dates: start: 201610
  3. BETALOC [Concomitant]
     Active Substance: METOPROLOL TARTRATE
  4. PRESTARIUM [Concomitant]
     Active Substance: PERINDOPRIL

REACTIONS (3)
  - Vascular stent occlusion [Not Recovered/Not Resolved]
  - Product use issue [Unknown]
  - Off label use [Unknown]
